FAERS Safety Report 15170959 (Version 1)
Quarter: 2018Q3

REPORT INFORMATION
  Report Type: Spontaneous
  Country: US (occurrence: US)
  Receive Date: 20180622
  Receipt Date: 20180622
  Transmission Date: 20181010
  Serious: Yes (Disabling)
  Sender: FDA-Public Use
  Company Number: None

PATIENT
  Age: 62 Year
  Sex: Female
  Weight: 47.25 kg

DRUGS (2)
  1. WOMEN^S ONE A DAY VITAMINS [Concomitant]
  2. ESTRADIOL VAGINAL CREAM USP 0.01% UNSCENTED [Suspect]
     Active Substance: ESTRADIOL
     Indication: VULVOVAGINAL DRYNESS
     Dosage: ?          OTHER FREQUENCY:3 TIMES PER WEEK;?
     Route: 067
     Dates: start: 20180408, end: 20180525

REACTIONS (4)
  - Headache [None]
  - Product substitution issue [None]
  - Deafness unilateral [None]
  - Dizziness [None]

NARRATIVE: CASE EVENT DATE: 20180508
